FAERS Safety Report 7176441-9 (Version None)
Quarter: 2010Q4

REPORT INFORMATION
  Report Type: 
  Country: None (occurrence: None)
  Receive Date: 20101220
  Receipt Date: 20101209
  Transmission Date: 20110411
  Serious: Yes (Hospitalization)
  Sender: FDA-Public Use
  Company Number: ES-JNJFOC-20101204280

PATIENT
  Age: 43 Year
  Sex: Male

DRUGS (3)
  1. REMICADE [Suspect]
     Indication: COLITIS ULCERATIVE
     Route: 042
  2. DEPAKENE [Suspect]
     Indication: EPILEPSY
     Route: 048
  3. DEPAKENE [Suspect]
     Route: 048

REACTIONS (2)
  - DRUG TOXICITY [None]
  - OEDEMA [None]
